FAERS Safety Report 5752073-1 (Version None)
Quarter: 2008Q2

REPORT INFORMATION
  Report Type: 
  Country: None (occurrence: None)
  Receive Date: 20080529
  Receipt Date: 20080526
  Transmission Date: 20081010
  Serious: Yes (Other)
  Sender: FDA-Public Use
  Company Number: DE-BRISTOL-MYERS SQUIBB COMPANY-14182893

PATIENT
  Age: 39 Year
  Sex: Female
  Weight: 133 kg

DRUGS (7)
  1. ABILIFY [Suspect]
     Indication: SCHIZOPHRENIA
     Dosage: 30MG/D,DEC05-DEC06;20MG/D,DEC06-DEC07;15MG/D,DEC07-MAY08,PO.
     Route: 048
     Dates: start: 20051201, end: 20080501
  2. ABILIFY [Suspect]
     Indication: PSYCHOTIC DISORDER
     Dosage: 30MG/D,DEC05-DEC06;20MG/D,DEC06-DEC07;15MG/D,DEC07-MAY08,PO.
     Route: 048
     Dates: start: 20051201, end: 20080501
  3. LEVOTHYROXINE SODIUM [Concomitant]
     Indication: HYPOTHYROIDISM
     Dosage: 1DF=125 UNITS NOT SPECIFIED.
  4. RAMIPRIL [Concomitant]
     Indication: HYPERTENSION
     Dosage: 1DF=5 UNITS NOT SPECIFIED.
  5. METFORMIN HCL [Concomitant]
     Indication: DIABETES MELLITUS
     Dosage: 1DF=850 UNITS NOT SPECIFIED.
  6. ACTRAPID HM [Concomitant]
     Dosage: 1DF=75IE TO 100IE(SOMETIMES).
  7. LANTUS [Concomitant]

REACTIONS (3)
  - DIABETES MELLITUS [None]
  - INCREASED INSULIN REQUIREMENT [None]
  - WEIGHT INCREASED [None]
